FAERS Safety Report 9743251 (Version 3)
Quarter: 2014Q1

REPORT INFORMATION
  Report Type: Report from Study
  Country: IT (occurrence: IT)
  Receive Date: 20131210
  Receipt Date: 20140208
  Transmission Date: 20141002
  Serious: Yes (Life-Threatening)
  Sender: FDA-Public Use
  Company Number: IT-ABBVIE-13P-083-1177874-00

PATIENT
  Age: 51 Year
  Sex: Female

DRUGS (4)
  1. DEPAKIN CHRONO [Suspect]
     Indication: BIPOLAR DISORDER
     Dosage: EXTENDED RELEASE
     Route: 048
  2. DEPAKIN CHRONO [Suspect]
     Indication: SUICIDE ATTEMPT
     Dosage: EXTENDED RELEASE
     Route: 048
     Dates: start: 20130217, end: 20130217
  3. LORAZEPAM [Concomitant]
     Indication: PRODUCT USED FOR UNKNOWN INDICATION
     Dates: start: 20130101, end: 20130217
  4. FLURAZEPAM HYDROCHLORIDE [Concomitant]
     Indication: PRODUCT USED FOR UNKNOWN INDICATION
     Dates: start: 20130101, end: 20130217

REACTIONS (2)
  - Drug abuse [Unknown]
  - Coma [Unknown]
